FAERS Safety Report 10203820 (Version 5)
Quarter: 2015Q3

REPORT INFORMATION
  Report Type: Spontaneous
  Country: US (occurrence: US)
  Receive Date: 20140529
  Receipt Date: 20150720
  Transmission Date: 20151125
  Serious: No
  Sender: FDA-Public Use
  Company Number: US-PFIZER INC-2014146304

PATIENT
  Age: 79 Year
  Sex: Female
  Weight: 77 kg

DRUGS (3)
  1. LYRICA [Suspect]
     Active Substance: PREGABALIN
     Indication: FATIGUE
     Dosage: 75 MG, 3X/DAY
     Dates: start: 20140611
  2. LYRICA [Suspect]
     Active Substance: PREGABALIN
     Indication: FIBROMYALGIA
     Dosage: 75 MG, 2X/DAY
     Route: 048
     Dates: start: 201401
  3. GABAPENTIN. [Suspect]
     Active Substance: GABAPENTIN
     Dosage: 600 MG, 1X/DAY
     Dates: start: 2013

REACTIONS (6)
  - Ear infection [Unknown]
  - Dizziness [Recovered/Resolved]
  - Malaise [Unknown]
  - Bedridden [Recovered/Resolved]
  - Sinusitis [Unknown]
  - Headache [Recovered/Resolved]

NARRATIVE: CASE EVENT DATE: 20140505
